FAERS Safety Report 5151313-X (Version None)
Quarter: 2006Q4

REPORT INFORMATION
  Report Type: 
  Country: None (occurrence: None)
  Receive Date: 20061115
  Receipt Date: 20061114
  Transmission Date: 20070319
  Serious: Yes (Other)
  Sender: FDA-Public Use
  Company Number: US-GLAXOSMITHKLINE-A0627517A

PATIENT
  Age: 31 Year
  Sex: Female

DRUGS (3)
  1. TRIZIVIR [Suspect]
     Dosage: 2TAB PER DAY
     Route: 048
  2. NORVIR [Concomitant]
     Dosage: 100MG PER DAY
     Route: 048
  3. REYATAZ [Concomitant]
     Dosage: 300MG PER DAY
     Route: 048

REACTIONS (2)
  - ABORTION INDUCED [None]
  - INTRA-UTERINE DEATH [None]
